FAERS Safety Report 9055718 (Version 1)
Quarter: 2013Q1

REPORT INFORMATION
  Report Type: Report from Study
  Country: US (occurrence: US)
  Receive Date: 20130209
  Receipt Date: 20130209
  Transmission Date: 20140127
  Serious: Yes (Other)
  Sender: FDA-Public Use
  Company Number: US-US-EMD SERONO, INC.-7191608

PATIENT
  Age: 53 None
  Sex: Male

DRUGS (14)
  1. EGRIFTA [Suspect]
     Indication: LIPODYSTROPHY ACQUIRED
     Route: 058
     Dates: start: 20110315
  2. ALDARA [Concomitant]
     Indication: PRODUCT USED FOR UNKNOWN INDICATION
     Route: 061
  3. NORVIR [Concomitant]
     Indication: HIV INFECTION
     Route: 048
  4. LEVITRA [Concomitant]
     Indication: PRODUCT USED FOR UNKNOWN INDICATION
     Route: 048
  5. TESTIM [Concomitant]
     Indication: HYPOGONADISM
  6. RALTEGRAVIR POTASSIUM [Concomitant]
     Indication: HIV INFECTION
     Route: 048
  7. LOVAZA [Concomitant]
     Indication: HYPERLIPIDAEMIA
     Route: 048
  8. FENOGLIDE [Concomitant]
     Indication: HYPERLIPIDAEMIA
     Route: 048
  9. NEVIRAPINE [Concomitant]
     Indication: HIV INFECTION
     Route: 048
  10. DARUNAVIR [Concomitant]
     Indication: HIV INFECTION
     Route: 048
  11. CRESTOR [Concomitant]
     Indication: HYPERLIPIDAEMIA
     Route: 048
  12. COZAAR [Concomitant]
     Indication: PRODUCT USED FOR UNKNOWN INDICATION
     Route: 048
  13. NEXIUM [Concomitant]
     Indication: PRODUCT USED FOR UNKNOWN INDICATION
     Route: 048
  14. EPZICOM [Concomitant]
     Indication: PRODUCT USED FOR UNKNOWN INDICATION
     Route: 048

REACTIONS (3)
  - Polypectomy [Unknown]
  - Abdominal pain lower [Unknown]
  - Rash [Unknown]
